FAERS Safety Report 17802819 (Version 1)
Quarter: 2020Q2

REPORT INFORMATION
  Report Type: Spontaneous
  Country: GT (occurrence: GT)
  Receive Date: 20200519
  Receipt Date: 20200519
  Transmission Date: 20200714
  Serious: Yes (Other)
  Sender: FDA-Public Use
  Company Number: GT-SA-2020SA125023

PATIENT
  Age: 77 Year
  Sex: Female

DRUGS (2)
  1. LANTUS SOLOSTAR [Suspect]
     Active Substance: INSULIN GLARGINE
     Indication: DIABETES MELLITUS
     Dosage: 42 IU
     Route: 065
  2. LANTUS SOLOSTAR [Suspect]
     Active Substance: INSULIN GLARGINE
     Dosage: 20 IU, SOMETIMES 18 IU, BECAUSE SHE HAS UNCONTROLLED BLOOD GLUCOSE LEVELS
     Route: 058
     Dates: start: 2012

REACTIONS (6)
  - Blood glucose increased [Recovering/Resolving]
  - Diabetes mellitus inadequate control [Unknown]
  - Device use issue [Recovering/Resolving]
  - Vascular dementia [Not Recovered/Not Resolved]
  - Blood glucose decreased [Recovered/Resolved]
  - Metabolic encephalopathy [Recovered/Resolved]
